FAERS Safety Report 6471644-0 (Version None)
Quarter: 2009Q4

REPORT INFORMATION
  Report Type: 
  Country: None (occurrence: None)
  Receive Date: 20091203
  Receipt Date: 20080616
  Transmission Date: 20100525
  Serious: Yes (Hospitalization)
  Sender: FDA-Public Use
  Company Number: US-ELI_LILLY_AND_COMPANY-US200804000163

PATIENT
  Sex: Male
  Weight: 103.76 kg

DRUGS (11)
  1. BYETTA [Suspect]
     Indication: TYPE 2 DIABETES MELLITUS
     Dosage: 5 UG, 2/D
     Route: 058
     Dates: start: 20060101, end: 20060101
  2. BYETTA [Suspect]
     Dosage: 10 UG, 2/D
     Route: 058
     Dates: start: 20060101, end: 20080129
  3. BYETTA [Suspect]
     Dosage: 10 UG, 2/D
     Route: 058
     Dates: start: 20080202
  4. GLYBURIDE [Concomitant]
     Indication: TYPE 2 DIABETES MELLITUS
     Dosage: 1.25 MG, 2/D
     Route: 048
     Dates: end: 20080204
  5. GLYBURIDE [Concomitant]
     Dosage: 5 MG, 2/D
     Route: 048
     Dates: start: 20080204
  6. ENALAPRIL [Concomitant]
     Dosage: 2.5 MG, DAILY (1/D)
  7. FUROSEMIDE [Concomitant]
     Dosage: 40 MG, DAILY (1/D)
     Route: 048
  8. COREG [Concomitant]
     Dosage: 18.75 MG, 2/D
     Route: 048
  9. LIPITOR [Concomitant]
     Dosage: 20 MG, DAILY (1/D)
     Route: 048
  10. NIASPAN [Concomitant]
     Dosage: 500 MG, DAILY (1/D)
  11. ASPIRIN [Concomitant]
     Dosage: 325 MG, 2/D

REACTIONS (6)
  - BLOOD GLUCOSE DECREASED [None]
  - BLOOD GLUCOSE INCREASED [None]
  - CARDIAC PACEMAKER INSERTION [None]
  - CORONARY ARTERY STENOSIS [None]
  - DECREASED APPETITE [None]
  - DRUG INEFFECTIVE [None]
